FAERS Safety Report 8462291-X (Version None)
Quarter: 2012Q2

REPORT INFORMATION
  Report Type: 
  Country: None (occurrence: None)
  Receive Date: 20120619
  Receipt Date: 20120619
  Transmission Date: 20120825
  Serious: Yes (Other)
  Sender: FDA-Public Use
  Company Number: None

PATIENT
  Age: 61 Year
  Sex: Male
  Weight: 137.4399 kg

DRUGS (1)
  1. VENLAFAXINE HCL EXTENDED-RELEASE [Suspect]
     Indication: DEPRESSION
     Dosage: ONE DAILY PO
     Route: 048
     Dates: start: 20120610, end: 20120618

REACTIONS (14)
  - HYPERHIDROSIS [None]
  - HEART RATE INCREASED [None]
  - DECREASED APPETITE [None]
  - UNEVALUABLE EVENT [None]
  - INSOMNIA [None]
  - DRUG WITHDRAWAL SYNDROME [None]
  - ANOSMIA [None]
  - CONFUSIONAL STATE [None]
  - THINKING ABNORMAL [None]
  - JUDGEMENT IMPAIRED [None]
  - FEAR [None]
  - EXTRASYSTOLES [None]
  - PRODUCT SUBSTITUTION ISSUE [None]
  - AGEUSIA [None]
